FAERS Safety Report 7622447-2 (Version None)
Quarter: 2011Q3

REPORT INFORMATION
  Report Type: 
  Country: None (occurrence: None)
  Receive Date: 20110711
  Receipt Date: 20110624
  Transmission Date: 20111222
  Serious: Yes (Hospitalization, Other)
  Sender: FDA-Public Use
  Company Number: 2011MA007084

PATIENT
  Age: 56 Year
  Sex: Female

DRUGS (2)
  1. INSULIN [Concomitant]
  2. TRIAMCINOLONE ACETONIDE [Suspect]
     Indication: ENDOPHTHALMITIS

REACTIONS (16)
  - VITREOUS DETACHMENT [None]
  - CATARACT CORTICAL [None]
  - EYE DISORDER [None]
  - POSTERIOR CAPSULE OPACIFICATION [None]
  - HYPHAEMA [None]
  - PUPILLARY DISORDER [None]
  - RETINAL HAEMORRHAGE [None]
  - ENDOPHTHALMITIS [None]
  - DISEASE PROGRESSION [None]
  - CORNEAL DISORDER [None]
  - STAPHYLOCOCCUS TEST POSITIVE [None]
  - MACULOPATHY [None]
  - VITREOUS FLOATERS [None]
  - RETINAL PALLOR [None]
  - NO THERAPEUTIC RESPONSE [None]
  - RETINAL DETACHMENT [None]
